FAERS Safety Report 23524482 (Version 1)
Quarter: 2024Q1

REPORT INFORMATION
  Report Type: Spontaneous
  Country: GB (occurrence: GB)
  Receive Date: 20240214
  Receipt Date: 20240214
  Transmission Date: 20240409
  Serious: Yes (Life-Threatening, Hospitalization, Other)
  Sender: FDA-Public Use
  Company Number: None

PATIENT
  Sex: Male
  Weight: 75 kg

DRUGS (7)
  1. ALLOPURINOL [Suspect]
     Active Substance: ALLOPURINOL
     Indication: Product use in unapproved indication
     Dosage: UNK
     Route: 065
  2. NEBIVOLOL [Suspect]
     Active Substance: NEBIVOLOL
     Indication: Product use in unapproved indication
     Dosage: UNK
     Route: 065
  3. ROSUVASTATIN [Suspect]
     Active Substance: ROSUVASTATIN
     Indication: Product use in unapproved indication
     Dosage: UNK
     Route: 065
  4. ASPIRIN [Suspect]
     Active Substance: ASPIRIN
     Indication: Product use in unapproved indication
     Dosage: UNK
     Route: 065
  5. ISOSORBIDE [Suspect]
     Active Substance: ISOSORBIDE
     Indication: Product use in unapproved indication
     Dosage: UNK
     Route: 065
  6. LANSOPRAZOLE [Suspect]
     Active Substance: LANSOPRAZOLE
     Indication: Product use in unapproved indication
     Dosage: UNK
     Route: 065
  7. ACETAMINOPHEN [Suspect]
     Active Substance: ACETAMINOPHEN
     Indication: Product use in unapproved indication
     Dosage: UNK
     Route: 065

REACTIONS (1)
  - Craniocerebral injury [Recovered/Resolved]

NARRATIVE: CASE EVENT DATE: 20231218
